FAERS Safety Report 12196783 (Version 5)
Quarter: 2016Q2

REPORT INFORMATION
  Report Type: Spontaneous
  Country: US (occurrence: US)
  Receive Date: 20160321
  Receipt Date: 20160419
  Transmission Date: 20160815
  Serious: Yes (Other)
  Sender: FDA-Public Use
  Company Number: US-MDT-ADR-2016-00539

PATIENT
  Age: 19 Year
  Sex: Male

DRUGS (5)
  1. ALBUTEROL. [Suspect]
     Active Substance: ALBUTEROL
     Dosage: AS NEEDED
  2. TRIHEXYPHENIDYL [Suspect]
     Active Substance: TRIHEXYPHENIDYL
  3. TRILEPTAL [Suspect]
     Active Substance: OXCARBAZEPINE
  4. LIORESAL [Suspect]
     Active Substance: BACLOFEN
     Dosage: 1497.4 MCG/DAY
     Route: 037
  5. LIORESAL [Suspect]
     Active Substance: BACLOFEN
     Dosage: 12.2MCG/DAY
     Route: 037

REACTIONS (1)
  - Musculoskeletal stiffness [Unknown]
